FAERS Safety Report 6479869-5 (Version None)
Quarter: 2009Q4

REPORT INFORMATION
  Report Type: 
  Country: None (occurrence: None)
  Receive Date: 20091208
  Receipt Date: 20091127
  Transmission Date: 20100525
  Serious: Yes (Hospitalization)
  Sender: FDA-Public Use
  Company Number: PHHY2009JP49554

PATIENT
  Sex: Male
  Weight: 63 kg

DRUGS (10)
  1. DIOVAN [Suspect]
     Indication: HYPERTENSION
     Dosage: 40 MG, QD
     Route: 048
     Dates: start: 20090416, end: 20090511
  2. DIOVAN [Suspect]
     Dosage: 40 MG, BID
     Route: 048
     Dates: start: 20090907, end: 20091005
  3. HOKUNALIN [Suspect]
     Indication: ASTHMA
     Dosage: 2 MG
     Route: 062
     Dates: start: 20090420, end: 20090907
  4. BAKUMONDOUTO [Suspect]
     Indication: ASTHMA
     Dosage: 6 G
     Route: 048
     Dates: start: 20090420, end: 20090511
  5. MUCODYNE [Suspect]
     Indication: UPPER RESPIRATORY TRACT INFLAMMATION
     Dosage: 250 MG
     Route: 048
     Dates: start: 20090907, end: 20090912
  6. TRANSAMIN [Suspect]
     Indication: UPPER RESPIRATORY TRACT INFLAMMATION
     Dosage: 250 MG
     Route: 048
     Dates: start: 20090907, end: 20090912
  7. DAIO-KANZO-TO [Suspect]
     Indication: ABDOMINAL ADHESIONS
     Dosage: 5 G
     Route: 048
     Dates: start: 20090622, end: 20090928
  8. SAIBOKU-TO [Suspect]
     Indication: ASTHMA
     Dosage: 2.5 G
     Route: 048
     Dates: start: 20090627, end: 20090928
  9. ANTIASTHMATICS [Concomitant]
  10. CHINESE MEDICINES [Concomitant]
     Route: 048

REACTIONS (7)
  - ABDOMINAL PAIN [None]
  - BILE DUCT STONE [None]
  - BLOOD SODIUM INCREASED [None]
  - CHOLECYSTITIS ACUTE [None]
  - HEPATIC FUNCTION ABNORMAL [None]
  - JAUNDICE CHOLESTATIC [None]
  - PYREXIA [None]
